FAERS Safety Report 16478872 (Version 1)
Quarter: 2019Q2

REPORT INFORMATION
  Report Type: Spontaneous
  Country: US (occurrence: US)
  Receive Date: 20190626
  Receipt Date: 20190626
  Transmission Date: 20190711
  Serious: Yes (Life-Threatening, Other)
  Sender: FDA-Public Use
  Company Number: US-009507513-1906USA009826

PATIENT
  Sex: Female

DRUGS (1)
  1. NEXPLANON [Suspect]
     Active Substance: ETONOGESTREL
     Indication: CONTRACEPTION
     Dosage: 1 IMPLANT: ONCE FOR UP TO THREE YEARS, HCP INSERTION
     Route: 059
     Dates: end: 2015

REACTIONS (6)
  - Syncope [Unknown]
  - Vaginal haemorrhage [Unknown]
  - Migraine [Unknown]
  - Anxiety [Unknown]
  - Depression [Unknown]
  - Device dislocation [Recovered/Resolved]
